FAERS Safety Report 5649794-8 (Version None)
Quarter: 2008Q1

REPORT INFORMATION
  Report Type: 
  Country: None (occurrence: None)
  Receive Date: 20080304
  Receipt Date: 20070530
  Transmission Date: 20080703
  Serious: Yes (Other)
  Sender: FDA-Public Use
  Company Number: CH-PFIZER INC-2008017717

PATIENT
  Age: 60 Year
  Sex: Male

DRUGS (1)
  1. HYDROXYZINE PAMOATE [Suspect]
     Indication: SLEEP DISORDER
     Route: 048

REACTIONS (1)
  - HEPATIC ENCEPHALOPATHY [None]
